FAERS Safety Report 11421158 (Version 1)
Quarter: 2015Q3

REPORT INFORMATION
  Report Type: Spontaneous
  Country: US (occurrence: US)
  Receive Date: 20150826
  Receipt Date: 20150826
  Transmission Date: 20151125
  Serious: Yes (Other)
  Sender: FDA-Public Use
  Company Number: US-AMGEN-USASP2015086565

PATIENT
  Age: 66 Year
  Sex: Female

DRUGS (3)
  1. ENBREL [Suspect]
     Active Substance: ETANERCEPT
     Indication: PULMONARY FIBROSIS
     Dosage: 50 MG, QWK
     Route: 058
     Dates: start: 201503
  2. ENBREL [Suspect]
     Active Substance: ETANERCEPT
     Indication: DERMATOMYOSITIS
  3. ENBREL [Suspect]
     Active Substance: ETANERCEPT
     Indication: POLYMYOSITIS

REACTIONS (5)
  - Respiratory disorder [Unknown]
  - Dyspnoea [Unknown]
  - Off label use [Unknown]
  - Myalgia [Unknown]
  - Pulmonary fibrosis [Unknown]

NARRATIVE: CASE EVENT DATE: 2015
